FAERS Safety Report 19589617 (Version 5)
Quarter: 2021Q3

REPORT INFORMATION
  Report Type: Spontaneous
  Country: US (occurrence: US)
  Receive Date: 20210721
  Receipt Date: 20210924
  Transmission Date: 20211014
  Serious: Yes (Hospitalization, Other)
  Sender: FDA-Public Use
  Company Number: US-UNITED THERAPEUTICS-UNT-2021-013648

PATIENT
  Age: 86 Year
  Sex: Male
  Weight: 86.17 kg

DRUGS (7)
  1. TYVASO [Suspect]
     Active Substance: TREPROSTINIL
     Dosage: 18?54 ?G, QID
     Dates: start: 2021
  2. TYVASO [Suspect]
     Active Substance: TREPROSTINIL
     Dosage: 30 ?G, QID
     Dates: start: 20210711, end: 202107
  3. SILDENAFIL CITRATE. [Concomitant]
     Active Substance: SILDENAFIL CITRATE
     Indication: PRODUCT USED FOR UNKNOWN INDICATION
     Dosage: UNK
     Route: 065
  4. TYVASO [Suspect]
     Active Substance: TREPROSTINIL
     Indication: PULMONARY ARTERIAL HYPERTENSION
     Dosage: 18 ?G, QID
     Dates: start: 20210625
  5. TYVASO [Suspect]
     Active Substance: TREPROSTINIL
     Dosage: 24 ?G (PER DOSE)
     Dates: start: 202107, end: 202107
  6. WARFARIN SODIUM. [Concomitant]
     Active Substance: WARFARIN SODIUM
     Indication: PRODUCT USED FOR UNKNOWN INDICATION
     Dosage: UNK
     Route: 065
  7. TYVASO [Suspect]
     Active Substance: TREPROSTINIL
     Dosage: 4 ?G, QID
     Dates: start: 20210702, end: 202107

REACTIONS (13)
  - Cough [Unknown]
  - Pneumonia [Unknown]
  - Throat irritation [Unknown]
  - Cardiac disorder [Unknown]
  - Sepsis [Unknown]
  - Therapy non-responder [Unknown]
  - Fall [Recovered/Resolved]
  - Chest pain [Unknown]
  - Loss of consciousness [Unknown]
  - Incoherent [Unknown]
  - Mental status changes [Unknown]
  - Lung disorder [Unknown]
  - Product label confusion [Unknown]

NARRATIVE: CASE EVENT DATE: 2021
